FAERS Safety Report 10612561 (Version 1)
Quarter: 2014Q4

REPORT INFORMATION
  Report Type: Spontaneous
  Country: US (occurrence: US)
  Receive Date: 20141127
  Receipt Date: 20141127
  Transmission Date: 20150529
  Serious: No
  Sender: FDA-Public Use
  Company Number: US-BIOGENIDEC-2014BI123295

PATIENT
  Sex: Female

DRUGS (9)
  1. METOPROLOL [Concomitant]
     Active Substance: METOPROLOL
  2. TECFIDERA [Suspect]
     Active Substance: DIMETHYL FUMARATE
     Indication: MULTIPLE SCLEROSIS
     Route: 048
     Dates: start: 20141101, end: 20141107
  3. ZIPZOR [Concomitant]
  4. ESTRIDIOL [Concomitant]
  5. DETROL [Concomitant]
     Active Substance: TOLTERODINE TARTRATE
  6. TECFIDERA [Suspect]
     Active Substance: DIMETHYL FUMARATE
     Indication: MULTIPLE SCLEROSIS
     Route: 048
     Dates: start: 20141108
  7. VITAMIN D [Concomitant]
     Active Substance: CHOLECALCIFEROL
  8. TIROZINT [Concomitant]
  9. MIRABEGRON [Concomitant]
     Active Substance: MIRABEGRON

REACTIONS (5)
  - Hypertension [Unknown]
  - Memory impairment [Unknown]
  - Abdominal discomfort [Unknown]
  - Motion sickness [Unknown]
  - Pain in extremity [Unknown]
